FAERS Safety Report 16868019 (Version 1)
Quarter: 2019Q4

REPORT INFORMATION
  Report Type: Spontaneous
  Country: US (occurrence: US)
  Receive Date: 20190930
  Receipt Date: 20190930
  Transmission Date: 20200122
  Serious: Yes (Disabling)
  Sender: FDA-Public Use
  Company Number: None

PATIENT
  Age: 76 Year
  Sex: Male
  Weight: 47.25 kg

DRUGS (14)
  1. CARBIDOPOA/LEVODOPA [Concomitant]
  2. LEVOTHYROXINE. [Concomitant]
     Active Substance: LEVOTHYROXINE
  3. SAW PALMETTO [Concomitant]
     Active Substance: HERBALS\SAW PALMETTO
  4. EXTRA MEGA PROSTAMAX [Concomitant]
  5. ENTACAPONE. [Concomitant]
     Active Substance: ENTACAPONE
  6. TAMSULOSIN [Concomitant]
     Active Substance: TAMSULOSIN
  7. LISINOPRIL. [Concomitant]
     Active Substance: LISINOPRIL
  8. MSM [Concomitant]
     Active Substance: DIMETHYL SULFONE
  9. GABAPENTIN. [Concomitant]
     Active Substance: GABAPENTIN
  10. CIPROFLOXACIN HCL [Suspect]
     Active Substance: CIPROFLOXACIN HYDROCHLORIDE
     Indication: INFECTION PROPHYLAXIS
     Dosage: ?          QUANTITY:1 TABLET(S);?
     Route: 048
     Dates: start: 20100821, end: 20190822
  11. AMANTADINE. [Concomitant]
     Active Substance: AMANTADINE HYDROCHLORIDE
  12. MELATONIN [Concomitant]
     Active Substance: MELATONIN
  13. CARBIDOPA/LEVODOPA [Concomitant]
     Active Substance: CARBIDOPA\LEVODOPA
  14. VITAMIN C [Concomitant]
     Active Substance: ASCORBIC ACID

REACTIONS (12)
  - Muscle spasms [None]
  - Balance disorder [None]
  - Dyskinesia [None]
  - Hypertension [None]
  - Head discomfort [None]
  - Loss of personal independence in daily activities [None]
  - Parkinson^s disease [None]
  - Condition aggravated [None]
  - Aphasia [None]
  - Gait disturbance [None]
  - Tremor [None]
  - Tendon disorder [None]

NARRATIVE: CASE EVENT DATE: 20190822
